FAERS Safety Report 6925872-8 (Version None)
Quarter: 2010Q3

REPORT INFORMATION
  Report Type: 
  Country: None (occurrence: None)
  Receive Date: 20100816
  Receipt Date: 20100706
  Transmission Date: 20110219
  Serious: Yes (Hospitalization)
  Sender: FDA-Public Use
  Company Number: -BAXTER-2010BH017839

PATIENT
  Age: 70 Year
  Sex: Female

DRUGS (2)
  1. DIANEAL [Suspect]
     Indication: PERITONEAL DIALYSIS
     Route: 033
     Dates: end: 20100101
  2. DIANEAL [Suspect]
     Indication: PERITONEAL DIALYSIS
     Dates: end: 20100101

REACTIONS (2)
  - FLUID OVERLOAD [None]
  - TREATMENT NONCOMPLIANCE [None]
